FAERS Safety Report 8609366-X (Version None)
Quarter: 2012Q3

REPORT INFORMATION
  Report Type: 
  Country: None (occurrence: None)
  Receive Date: 20120821
  Receipt Date: 20120816
  Transmission Date: 20120928
  Serious: Yes (Disabling)
  Sender: FDA-Public Use
  Company Number: CA-BAYER-2012-063252

PATIENT
  Age: 43 Year
  Sex: Female

DRUGS (2)
  1. VITAMIN TAB [Concomitant]
  2. BETASERON [Suspect]
     Indication: MULTIPLE SCLEROSIS
     Dosage: 0.25 MG, QOD
     Route: 058
     Dates: start: 20100101

REACTIONS (2)
  - OPTIC NEURITIS [None]
  - BLINDNESS [None]
